FAERS Safety Report 12077864 (Version 3)
Quarter: 2016Q1

REPORT INFORMATION
  Report Type: Spontaneous
  Country: US (occurrence: US)
  Receive Date: 20160215
  Receipt Date: 20160330
  Transmission Date: 20160526
  Serious: Yes (Death, Hospitalization)
  Sender: FDA-Public Use
  Company Number: US-ELI_LILLY_AND_COMPANY-US201602004597

PATIENT
  Age: 48 Year
  Sex: Female

DRUGS (4)
  1. ADCIRCA [Suspect]
     Active Substance: TADALAFIL
     Indication: PULMONARY ARTERIAL HYPERTENSION
     Dosage: 20 MG, BID
     Route: 048
     Dates: start: 201406
  2. TYVASO [Suspect]
     Active Substance: TREPROSTINIL
     Indication: PULMONARY HYPERTENSION
     Dosage: 9 DF, QID
     Route: 055
     Dates: start: 20150708
  3. OPSUMIT [Concomitant]
     Active Substance: MACITENTAN
     Indication: PULMONARY HYPERTENSION
     Dosage: 10 MG, QD
     Route: 065
  4. SYMBICORT [Concomitant]
     Active Substance: BUDESONIDE\FORMOTEROL FUMARATE DIHYDRATE
     Indication: CHRONIC OBSTRUCTIVE PULMONARY DISEASE
     Dosage: UNK, UNKNOWN
     Route: 065

REACTIONS (25)
  - Septic shock [Fatal]
  - Obesity [Fatal]
  - Chronic obstructive pulmonary disease [Fatal]
  - Pneumonia adenoviral [Fatal]
  - Cardiogenic shock [Fatal]
  - Cardio-respiratory arrest [Fatal]
  - Pneumonia [Fatal]
  - Anxiety [Fatal]
  - Delirium [Fatal]
  - Malnutrition [Fatal]
  - Pulmonary hypertension [Fatal]
  - Respiratory acidosis [Fatal]
  - Hypoalbuminaemia [Fatal]
  - Hyperglycaemia [Fatal]
  - Adrenal insufficiency [Fatal]
  - Hypotension [Fatal]
  - Gastrointestinal inflammation [Fatal]
  - Thrombocytopenia [Fatal]
  - Acute respiratory distress syndrome [Fatal]
  - Sleep apnoea syndrome [Fatal]
  - Colitis [Fatal]
  - Hypophosphataemia [Fatal]
  - Hypocalcaemia [Fatal]
  - Hyponatraemia [Fatal]
  - Metabolic encephalopathy [Fatal]

NARRATIVE: CASE EVENT DATE: 20160127
